FAERS Safety Report 9834480 (Version 2)
Quarter: 2014Q2

REPORT INFORMATION
  Report Type: Spontaneous
  Country: PE (occurrence: PE)
  Receive Date: 20140122
  Receipt Date: 20140416
  Transmission Date: 20141212
  Serious: Yes (Other)
  Sender: FDA-Public Use
  Company Number: PE-SA-2014SA008219

PATIENT
  Age: 45 Year
  Sex: Male

DRUGS (1)
  1. COAPROVEL [Suspect]
     Indication: HYPERTENSION
     Route: 048
     Dates: start: 2011

REACTIONS (1)
  - Conjunctival haemorrhage [Recovered/Resolved]
